FAERS Safety Report 15121481 (Version 2)
Quarter: 2018Q3

REPORT INFORMATION
  Report Type: Spontaneous
  Country: BR (occurrence: BR)
  Receive Date: 20180709
  Receipt Date: 20180810
  Transmission Date: 20181010
  Serious: Yes (Disabling, Other)
  Sender: FDA-Public Use
  Company Number: BR-B.I. PHARMACEUTICALS,INC./RIDGEFIELD-2018-BI-034407

PATIENT
  Sex: Female
  Weight: 72 kg

DRUGS (8)
  1. FUROSEMIDA [Concomitant]
     Active Substance: FUROSEMIDE
     Indication: FLUID RETENTION
     Dosage: UNIT DOSE AND DAILY DOE: 40
     Route: 048
  2. RIVOTRIL [Concomitant]
     Active Substance: CLONAZEPAM
     Indication: HYPERTENSION
     Route: 048
  3. ATENSINA [Suspect]
     Active Substance: CLONIDINE
     Indication: HYPERTENSION
     Route: 048
     Dates: start: 2011, end: 20180701
  4. VENAFLON [Concomitant]
     Indication: THROMBOSIS
     Dosage: DOSE? 450/50 MILLIGRAM
     Route: 048
     Dates: start: 2015
  5. METILDOPA [Concomitant]
     Active Substance: METHYLDOPA
     Indication: HYPERTENSION
     Route: 048
     Dates: start: 201806
  6. LOSARTANA [Concomitant]
     Active Substance: LOSARTAN
     Indication: HYPERTENSION
     Route: 048
     Dates: start: 201806
  7. SUSTRATE [Concomitant]
     Active Substance: PROPATYL NITRATE
     Indication: CARDIAC DISORDER
     Route: 048
  8. XARELTO [Concomitant]
     Active Substance: RIVAROXABAN
     Indication: ANTICOAGULANT THERAPY
     Route: 048
     Dates: start: 2015

REACTIONS (15)
  - Feeling abnormal [Unknown]
  - Cough [Not Recovered/Not Resolved]
  - Ear infection [Recovered/Resolved]
  - Cardiomegaly [Unknown]
  - Neoplasm malignant [Recovered/Resolved]
  - Throat cancer [Unknown]
  - Blood pressure increased [Recovering/Resolving]
  - Limb deformity [Not Recovered/Not Resolved]
  - Malignant melanoma [Unknown]
  - Peripheral swelling [Not Recovered/Not Resolved]
  - Chest pain [Not Recovered/Not Resolved]
  - Ear discomfort [Recovered/Resolved]
  - Fatigue [Not Recovered/Not Resolved]
  - Pneumonia [Not Recovered/Not Resolved]
  - Asthenia [Not Recovered/Not Resolved]

NARRATIVE: CASE EVENT DATE: 2015
